FAERS Safety Report 6815366-2 (Version None)
Quarter: 2010Q3

REPORT INFORMATION
  Report Type: 
  Country: None (occurrence: None)
  Receive Date: 20100702
  Receipt Date: 20100624
  Transmission Date: 20110219
  Serious: Yes (Other)
  Sender: FDA-Public Use
  Company Number: US-SANOFI-AVENTIS-2010SA037851

PATIENT
  Sex: Male

DRUGS (5)
  1. PLAVIX [Suspect]
     Indication: BLOOD PRESSURE
     Route: 048
     Dates: start: 20070101
  2. PLAVIX [Suspect]
     Indication: PLATELET DISORDER
     Route: 048
     Dates: start: 20070101
  3. PLAVIX [Suspect]
     Route: 048
     Dates: start: 20070101
  4. APIDRA [Concomitant]
  5. LANTUS [Concomitant]

REACTIONS (1)
  - BLOOD PRESSURE INCREASED [None]
